FAERS Safety Report 20532732 (Version 3)
Quarter: 2022Q3

REPORT INFORMATION
  Report Type: Spontaneous
  Country: JP (occurrence: JP)
  Receive Date: 20220301
  Receipt Date: 20220901
  Transmission Date: 20221026
  Serious: Yes (Hospitalization, Other)
  Sender: FDA-Public Use
  Company Number: JP-DSJP-DSJ-2022-107265

PATIENT
  Age: 48 Year
  Sex: Male

DRUGS (1)
  1. ENHERTU [Suspect]
     Active Substance: FAM-TRASTUZUMAB DERUXTECAN-NXKI
     Indication: HER2 positive gastric cancer
     Dosage: 6.4 MG/KG, ONCE EVERY 3 WK, 13 COURSES
     Route: 041
     Dates: start: 20201204, end: 20211216

REACTIONS (4)
  - Oesophageal obstruction [Unknown]
  - Ascites [Unknown]
  - KL-6 increased [Unknown]
  - Disease progression [Unknown]

NARRATIVE: CASE EVENT DATE: 20211022
